FAERS Safety Report 5742834-7 (Version None)
Quarter: 2008Q2

REPORT INFORMATION
  Report Type: 
  Country: None (occurrence: None)
  Receive Date: 20080515
  Receipt Date: 20080515
  Transmission Date: 20081010
  Serious: Yes (Life-Threatening, Hospitalization)
  Sender: FDA-Public Use
  Company Number: None

PATIENT
  Age: 63 Year
  Sex: Male
  Weight: 83.46 kg

DRUGS (1)
  1. SULFAMETHOXAZOLE AND TRIMETHOPRIM [Suspect]
     Indication: PROSTATIC ABSCESS
     Dosage: 800/160 MG BID PO
     Route: 048
     Dates: start: 20080207, end: 20080226

REACTIONS (9)
  - ANAPHYLACTIC REACTION [None]
  - ANGIOEDEMA [None]
  - DYSPHONIA [None]
  - DYSPNOEA [None]
  - HYPERTENSION [None]
  - PRURITUS [None]
  - RASH [None]
  - RESTLESSNESS [None]
  - URTICARIA [None]
